FAERS Safety Report 18191521 (Version 1)
Quarter: 2020Q3

REPORT INFORMATION
  Report Type: Spontaneous
  Country: US (occurrence: US)
  Receive Date: 20200825
  Receipt Date: 20200825
  Transmission Date: 20201103
  Serious: No
  Sender: FDA-Public Use
  Company Number: US-SA-2020SA221565

PATIENT

DRUGS (2)
  1. LANTUS [Suspect]
     Active Substance: INSULIN GLARGINE
     Indication: TYPE 2 DIABETES MELLITUS
     Dosage: 19 IU, BID
  2. LANTUS [Suspect]
     Active Substance: INSULIN GLARGINE
     Dosage: GETTING A PARTIAL DOSE

REACTIONS (1)
  - Inappropriate schedule of product administration [Unknown]
